FAERS Safety Report 12249700 (Version 1)
Quarter: 2016Q2

REPORT INFORMATION
  Report Type: Report from Study
  Country: US (occurrence: US)
  Receive Date: 20160408
  Receipt Date: 20160408
  Transmission Date: 20160815
  Serious: Yes (Hospitalization)
  Sender: FDA-Public Use
  Company Number: US-ABBVIE-16K-163-1596641-00

PATIENT
  Age: 30 Year
  Sex: Male
  Weight: 102.15 kg

DRUGS (4)
  1. AMLODIPINE [Concomitant]
     Active Substance: AMLODIPINE BESYLATE
     Indication: HYPERTENSION
  2. HUMIRA [Suspect]
     Active Substance: ADALIMUMAB
     Indication: CROHN^S DISEASE
     Route: 058
     Dates: start: 20160108
  3. PAXIL [Concomitant]
     Active Substance: PAROXETINE HYDROCHLORIDE
     Indication: DEPRESSION
  4. LISINOPRIL. [Concomitant]
     Active Substance: LISINOPRIL
     Indication: HYPERTENSION

REACTIONS (5)
  - Drug ineffective [Not Recovered/Not Resolved]
  - Diarrhoea [Recovering/Resolving]
  - Vomiting [Recovering/Resolving]
  - Abdominal distension [Recovering/Resolving]
  - Abdominal pain [Recovering/Resolving]

NARRATIVE: CASE EVENT DATE: 20160330
